FAERS Safety Report 5243909-1 (Version None)
Quarter: 2007Q1

REPORT INFORMATION
  Report Type: 
  Country: None (occurrence: None)
  Receive Date: 20070222
  Receipt Date: 20070209
  Transmission Date: 20070707
  Serious: Yes (Other)
  Sender: FDA-Public Use
  Company Number: PHNU2007DE00840

PATIENT
  Sex: Female

DRUGS (1)
  1. CLOZAPINE [Suspect]
     Dosage: 225 MG/DAY
     Route: 048
     Dates: start: 20070101

REACTIONS (3)
  - GASTROINTESTINAL INFECTION [None]
  - LYMPHOPENIA [None]
  - NEUTROPHILIA [None]
